FAERS Safety Report 9070980 (Version 1)
Quarter: 2013Q1

REPORT INFORMATION
  Report Type: Report from Study
  Country: JP (occurrence: JP)
  Receive Date: 20130129
  Receipt Date: 20130129
  Transmission Date: 20140127
  Serious: Yes (Other)
  Sender: FDA-Public Use
  Company Number: JP-GLAXOSMITHKLINE-B0860768A

PATIENT
  Age: 75 None
  Sex: Male
  Weight: 62 kg

DRUGS (13)
  1. SERETIDE (50MCG/250MCG) [Suspect]
     Indication: EMPHYSEMA
     Dosage: 250MCG TWICE PER DAY
     Route: 055
     Dates: start: 20090810
  2. NORVASC [Concomitant]
     Indication: HYPERTENSION
     Route: 048
  3. BLOPRESS [Concomitant]
     Indication: HYPERTENSION
     Route: 048
     Dates: end: 20090907
  4. PURSENNID [Concomitant]
     Indication: CONSTIPATION
     Route: 048
  5. SPIRIVA [Concomitant]
     Indication: EMPHYSEMA
     Route: 055
  6. IRBESARTAN [Concomitant]
     Indication: HYPERTENSION
     Route: 048
     Dates: start: 20090907
  7. NEOPHYLLIN INJECTION [Concomitant]
     Indication: EMPHYSEMA
     Dates: start: 20091128, end: 20091128
  8. NEOPHYLLIN INJECTION [Concomitant]
     Indication: EMPHYSEMA
     Dates: start: 20091207, end: 20091207
  9. NEOPHYLLIN INJECTION [Concomitant]
     Indication: EMPHYSEMA
     Dates: start: 20100618, end: 20100618
  10. MUCODYNE [Concomitant]
     Indication: ASTHMA
     Route: 048
     Dates: start: 20100618, end: 20100622
  11. PNEUMOCOCCAL VACCINE [Concomitant]
     Route: 058
     Dates: start: 200902, end: 200902
  12. INFLUENZA VACCINE [Concomitant]
     Route: 058
     Dates: start: 200910, end: 200910
  13. UNKNOWN DRUG [Concomitant]
     Route: 058
     Dates: start: 200911, end: 200911

REACTIONS (10)
  - Acute tonsillitis [Recovered/Resolved]
  - Acute tonsillitis [Recovered/Resolved]
  - Neurogenic bladder [Recovered/Resolved]
  - Prostate cancer [Recovered/Resolved]
  - Stomatitis [Recovered/Resolved]
  - Bronchitis [Recovered/Resolved]
  - Chronic obstructive pulmonary disease [Recovered/Resolved]
  - Chronic obstructive pulmonary disease [Recovered/Resolved]
  - Bronchitis [Recovered/Resolved]
  - Chronic obstructive pulmonary disease [Recovered/Resolved]
